FAERS Safety Report 5857917-0 (Version None)
Quarter: 2008Q3

REPORT INFORMATION
  Report Type: 
  Country: None (occurrence: None)
  Receive Date: 20080825
  Receipt Date: 20080825
  Transmission Date: 20090109
  Serious: Yes (Other)
  Sender: FDA-Public Use
  Company Number: None

PATIENT
  Age: 60 Year
  Sex: Female
  Weight: 78.0187 kg

DRUGS (1)
  1. OPANA ER [Suspect]
     Indication: PAIN
     Dosage: 10 MG TWICE DAILY PO
     Route: 048
     Dates: start: 20080501, end: 20080516

REACTIONS (5)
  - DRUG HYPERSENSITIVITY [None]
  - HAEMORRHAGE [None]
  - JOINT SWELLING [None]
  - MIGRAINE [None]
  - WEIGHT INCREASED [None]
